FAERS Safety Report 8416961 (Version 5)
Quarter: 2013Q1

REPORT INFORMATION
  Report Type: Report from Study
  Country: JP (occurrence: JP)
  Receive Date: 20120220
  Receipt Date: 20130321
  Transmission Date: 20140127
  Serious: Yes (Hospitalization)
  Sender: FDA-Public Use
  Company Number: JP-GILEAD-2012-0051086

PATIENT
  Age: 50 Year
  Sex: Female

DRUGS (47)
  1. AMBRISENTAN [Suspect]
     Indication: PULMONARY ARTERIAL HYPERTENSION
     Dosage: UNK
     Dates: start: 20120206, end: 20120207
  2. REVATIO [Concomitant]
     Indication: PULMONARY ARTERIAL HYPERTENSION
     Dosage: 60MG PER DAY
  3. REVATIO [Concomitant]
     Dosage: 60MG PER DAY
     Route: 048
  4. REVATIO [Concomitant]
     Dosage: 60MG PER DAY
     Route: 048
  5. REVATIO [Concomitant]
     Dosage: 20MG THREE TIMES PER DAY
     Route: 048
  6. REVATIO [Concomitant]
     Dosage: 20MG THREE TIMES PER DAY
     Route: 048
  7. WARFARIN [Concomitant]
     Indication: PORTAL VEIN THROMBOSIS
     Dosage: 1MG PER DAY
  8. WARFARIN [Concomitant]
     Dosage: 1MG PER DAY
     Route: 048
  9. WARFARIN [Concomitant]
     Dosage: 1MG PER DAY
     Route: 048
  10. WARFARIN [Concomitant]
     Dosage: 1MG PER DAY
     Route: 048
  11. WARFARIN [Concomitant]
     Dosage: 1MG PER DAY
     Route: 048
  12. SPIRONOLACTONE [Concomitant]
     Indication: OEDEMA
     Dosage: UNK
  13. SPIRONOLACTONE [Concomitant]
     Dosage: 50MG PER DAY
     Route: 048
  14. SPIRONOLACTONE [Concomitant]
     Dosage: 50MG PER DAY
     Route: 048
  15. PARIET [Concomitant]
     Indication: PROPHYLAXIS
     Dosage: UNK
  16. PARIET [Concomitant]
     Dosage: 10MG PER DAY
     Route: 048
  17. PARIET [Concomitant]
     Dosage: 10MG PER DAY
     Route: 048
  18. PARIET [Concomitant]
     Dosage: 10MG PER DAY
     Route: 048
  19. PARIET [Concomitant]
     Dosage: 10MG PER DAY
     Route: 048
  20. URSODEOXYCHOLIC ACID [Concomitant]
     Dosage: UNK
  21. URSODEOXYCHOLIC ACID [Concomitant]
     Dosage: 600MG PER DAY
     Route: 048
  22. URSODEOXYCHOLIC ACID [Concomitant]
     Dosage: 600MG PER DAY
     Route: 048
  23. FUROSEMIDE [Concomitant]
     Indication: OEDEMA
     Dosage: UNK
  24. FUROSEMIDE [Concomitant]
     Dosage: 10MG PER DAY
     Route: 048
  25. FUROSEMIDE [Concomitant]
     Dosage: 10MG PER DAY
     Route: 048
  26. FUROSEMIDE [Concomitant]
     Dosage: 10MG PER DAY
     Route: 048
  27. FUROSEMIDE [Concomitant]
     Dosage: 10MG PER DAY
     Route: 048
  28. CINAL [Concomitant]
     Dosage: UNK
  29. CINAL [Concomitant]
     Dosage: 3IUAX PER DAY
     Route: 048
  30. CINAL [Concomitant]
     Dosage: 3IUAX PER DAY
     Route: 048
  31. CINAL [Concomitant]
     Dosage: 1IUAX THREE TIMES PER DAY
     Route: 048
  32. CINAL [Concomitant]
     Dosage: 1IUAX THREE TIMES PER DAY
     Route: 048
  33. ALLEGRA [Concomitant]
     Indication: RHINITIS ALLERGIC
     Dosage: UNK
  34. ALLEGRA [Concomitant]
     Dosage: 120MG PER DAY
     Route: 048
  35. ALLEGRA [Concomitant]
     Dosage: 120MG PER DAY
     Route: 048
  36. ALLEGRA [Concomitant]
     Dosage: 60MG TWICE PER DAY
     Route: 048
  37. ALLEGRA [Concomitant]
     Dosage: 60MG TWICE PER DAY
     Route: 048
  38. PROMAC                             /01312301/ [Concomitant]
     Dosage: UNK
  39. LIVACT                             /00847901/ [Concomitant]
     Dosage: UNK
  40. PURSENNID /00142207/ [Concomitant]
     Indication: CONSTIPATION
     Dosage: UNK
  41. INCREMIN C IRON [Concomitant]
     Indication: IRON DEFICIENCY ANAEMIA
     Dosage: 15ML PER DAY
     Route: 048
  42. PROMAC                             /00024401/ [Concomitant]
     Dosage: 75MG TWICE PER DAY
     Route: 048
  43. LIVACT                             /00847901/ [Concomitant]
     Dosage: 1IUAX PER DAY
     Route: 048
  44. PURSENNID /00142207/ [Concomitant]
     Indication: CONSTIPATION
     Dosage: 36MG PER DAY
     Route: 048
  45. URDENACIN [Concomitant]
     Dosage: 200MG THREE TIMES PER DAY
     Route: 048
  46. URDENACIN [Concomitant]
     Dosage: 200MG THREE TIMES PER DAY
     Route: 048
  47. INCREMIN                           /00023544/ [Concomitant]
     Indication: IRON DEFICIENCY ANAEMIA
     Dosage: 5ML THREE TIMES PER DAY
     Route: 048

REACTIONS (11)
  - Mental status changes [Unknown]
  - Confusional state [Unknown]
  - Decreased appetite [Unknown]
  - Abdominal pain upper [Unknown]
  - Abdominal pain [Unknown]
  - Nausea [Unknown]
  - Vomiting [Unknown]
  - Rash [Unknown]
  - Hepatic encephalopathy [Recovering/Resolving]
  - Altered state of consciousness [Recovering/Resolving]
  - Hyperammonaemia [Recovered/Resolved]
